FAERS Safety Report 5577307-8 (Version None)
Quarter: 2007Q4

REPORT INFORMATION
  Report Type: 
  Country: None (occurrence: None)
  Receive Date: 20071228
  Receipt Date: 20071218
  Transmission Date: 20080405
  Serious: Yes (Other)
  Sender: FDA-Public Use
  Company Number: US-PFIZER INC-2007089542

PATIENT
  Sex: Male
  Weight: 131.5 kg

DRUGS (5)
  1. CHANTIX [Suspect]
     Indication: EX-SMOKER
     Route: 048
     Dates: start: 20070901, end: 20071001
  2. XANAX [Suspect]
  3. LITHIUM [Concomitant]
  4. SEROQUEL [Concomitant]
  5. ANTITHROMBOTIC AGENTS [Concomitant]

REACTIONS (4)
  - PERSONALITY CHANGE [None]
  - SUICIDAL IDEATION [None]
  - URINARY RETENTION [None]
  - VIOLENCE-RELATED SYMPTOM [None]
